FAERS Safety Report 6535048-4 (Version None)
Quarter: 2010Q1

REPORT INFORMATION
  Report Type: 
  Country: None (occurrence: None)
  Receive Date: 20100112
  Receipt Date: 20100111
  Transmission Date: 20100710
  Serious: Yes (Other)
  Sender: FDA-Public Use
  Company Number: US-GENENTECH-286989

PATIENT
  Sex: Female

DRUGS (7)
  1. XOLAIR [Suspect]
     Indication: ASTHMA
     Dosage: 300 MG, Q4W
     Route: 058
     Dates: start: 20050812, end: 20090424
  2. SYNTHROID [Concomitant]
     Indication: HYPOTHYROIDISM
  3. CARDIZEM [Concomitant]
     Indication: HYPERTENSION
  4. ADVAIR DISKUS 100/50 [Concomitant]
     Indication: ASTHMA
  5. PROVENTIL [Concomitant]
     Indication: ASTHMA
  6. ALBUTEROL/ALBUTEROL SULFATE/IPRATROPIUM BROMI [Concomitant]
     Indication: ASTHMA
  7. VERAMYST [Concomitant]
     Indication: RHINITIS

REACTIONS (1)
  - ANAPHYLACTIC SHOCK [None]
